FAERS Safety Report 7104555-8 (Version None)
Quarter: 2010Q4

REPORT INFORMATION
  Report Type: 
  Country: None (occurrence: None)
  Receive Date: 20101116
  Receipt Date: 20101109
  Transmission Date: 20110411
  Serious: No
  Sender: FDA-Public Use
  Company Number: US-BIOGENIDEC-2010BI039774

PATIENT
  Age: 46 Year
  Sex: Female

DRUGS (1)
  1. TYSABRI [Suspect]
     Indication: MULTIPLE SCLEROSIS
     Route: 042
     Dates: start: 20090327, end: 20100813

REACTIONS (5)
  - ACCIDENT [None]
  - FOOT FRACTURE [None]
  - HYPERKERATOSIS [None]
  - NASOPHARYNGITIS [None]
  - ROAD TRAFFIC ACCIDENT [None]
